FAERS Safety Report 9314617 (Version 2)
Quarter: 2013Q2

REPORT INFORMATION
  Report Type: Spontaneous
  Country: US (occurrence: US)
  Receive Date: 20130529
  Receipt Date: 20130625
  Transmission Date: 20140414
  Serious: Yes (Other)
  Sender: FDA-Public Use
  Company Number: US-SANOFI-AVENTIS-2013SA053198

PATIENT
  Age: 61 Year
  Sex: Female

DRUGS (4)
  1. ZALTRAP [Suspect]
  2. IRINOTECAN HYDROCHLORIDE [Suspect]
  3. 5-FU [Suspect]
  4. FOLINIC ACID [Suspect]

REACTIONS (4)
  - Pelvic mass [Unknown]
  - Hepatic mass [Unknown]
  - Thrombocytopenia [Unknown]
  - Fatigue [Unknown]
